FAERS Safety Report 6696486-2 (Version None)
Quarter: 2010Q2

REPORT INFORMATION
  Report Type: 
  Country: None (occurrence: None)
  Receive Date: 20100426
  Receipt Date: 20090529
  Transmission Date: 20101027
  Serious: No
  Sender: FDA-Public Use
  Company Number: A0775187A

PATIENT
  Age: 27 Year
  Sex: Female
  Weight: 65.9 kg

DRUGS (1)
  1. ONDANSETRON [Suspect]
     Indication: NAUSEA
     Dosage: 4MG AS REQUIRED
     Route: 048

REACTIONS (2)
  - DRUG INEFFECTIVE [None]
  - PRODUCT QUALITY ISSUE [None]
